FAERS Safety Report 18384192 (Version 1)
Quarter: 2020Q4

REPORT INFORMATION
  Report Type: Spontaneous
  Country: US (occurrence: US)
  Receive Date: 20201014
  Receipt Date: 20201014
  Transmission Date: 20210114
  Serious: No
  Sender: FDA-Public Use
  Company Number: US-INTRA-CELLULAR THERAPIES, INC.-2020ICT00090

PATIENT
  Sex: Male

DRUGS (3)
  1. CAPLYTA [Suspect]
     Active Substance: LUMATEPERONE
     Indication: SCHIZOPHRENIA
     Dosage: 42 MG, 1X/DAY
     Route: 048
  2. OTHER UNSPECIFIED DRUGS [Suspect]
     Active Substance: UNSPECIFIED INGREDIENT
  3. CAPLYTA [Suspect]
     Active Substance: LUMATEPERONE
     Dosage: 21 MG (HALF OF A CAPSULE), 1X/DAY
     Route: 048

REACTIONS (3)
  - Intentional product misuse [Recovered/Resolved]
  - Nausea [Unknown]
  - Vomiting [Unknown]
